FAERS Safety Report 4300559-9 (Version None)
Quarter: 2004Q1

REPORT INFORMATION
  Report Type: 
  Country: None (occurrence: None)
  Receive Date: 20040218
  Receipt Date: 20040212
  Transmission Date: 20041129
  Serious: Yes (Hospitalization)
  Sender: FDA-Public Use
  Company Number: K200400106

PATIENT
  Age: 89 Year
  Sex: Male

DRUGS (2)
  1. ALTACE [Suspect]
     Dosage: 5 MG, QD, ORAL
     Route: 048
  2. MAREVAN (WARFARIN SODIUM), 5MG [Concomitant]

REACTIONS (1)
  - IDIOPATHIC THROMBOCYTOPENIC PURPURA [None]
